FAERS Safety Report 9966431 (Version 1)
Quarter: 2014Q1

REPORT INFORMATION
  Report Type: Report from Study
  Country: US (occurrence: US)
  Receive Date: 20140305
  Receipt Date: 20140305
  Transmission Date: 20141002
  Serious: No
  Sender: FDA-Public Use
  Company Number: US-ABBVIE-13P-163-1120717-00

PATIENT
  Age: 52 Year
  Sex: Female

DRUGS (1)
  1. HUMIRA 40MG/0.4ML [Suspect]
     Indication: CROHN^S DISEASE
     Dates: start: 201305

REACTIONS (2)
  - Paraesthesia [Not Recovered/Not Resolved]
  - Drug ineffective [Recovering/Resolving]
